FAERS Safety Report 5453739-3 (Version None)
Quarter: 2007Q3

REPORT INFORMATION
  Report Type: 
  Country: None (occurrence: None)
  Receive Date: 20070917
  Receipt Date: 20070911
  Transmission Date: 20080115
  Serious: Yes (Death)
  Sender: FDA-Public Use
  Company Number: JP-BRISTOL-MYERS SQUIBB COMPANY-13654744

PATIENT
  Age: 70 Year
  Sex: Male

DRUGS (10)
  1. TAXOL [Suspect]
     Indication: LUNG NEOPLASM MALIGNANT
     Dosage: 72MG X 1/1 WEEK WAS GIVEN ON 26-SEP-2006
     Route: 041
     Dates: start: 20061024, end: 20061205
  2. PARAPLATIN [Suspect]
     Indication: LUNG NEOPLASM MALIGNANT
     Route: 041
     Dates: start: 20060926, end: 20061205
  3. JUZEN-TAIHO-TO [Suspect]
     Indication: ASTHENIA
     Dosage: PREVIOUSLY ADMINISTERED ON 26-SEP-2007 WITH DOSAGE OF 72MG.
     Route: 048
     Dates: start: 20061214, end: 20070104
  4. RADIOTHERAPY [Concomitant]
     Indication: LUNG NEOPLASM MALIGNANT
  5. SEROTONE [Concomitant]
     Route: 041
     Dates: start: 20060926, end: 20061205
  6. VENA [Concomitant]
     Route: 048
     Dates: start: 20060926, end: 20061205
  7. DECADRON [Concomitant]
     Route: 042
     Dates: start: 20060926, end: 20061205
  8. ZANTAC 150 [Concomitant]
     Route: 042
     Dates: start: 20060926, end: 20061205
  9. LANSOPRAZOLE [Concomitant]
     Route: 048
     Dates: start: 20061123, end: 20070214
  10. CODEINE PHOSPHATE [Concomitant]
     Route: 048
     Dates: start: 20061214, end: 20070508

REACTIONS (2)
  - ERYTHEMA [None]
  - INTERSTITIAL LUNG DISEASE [None]
